FAERS Safety Report 12497391 (Version 2)
Quarter: 2016Q3

REPORT INFORMATION
  Report Type: Spontaneous
  Country: None (occurrence: GB)
  Receive Date: 20160624
  Receipt Date: 20160715
  Transmission Date: 20161109
  Serious: Yes (Hospitalization, Disabling, Other)
  Sender: FDA-Public Use
  Company Number: GB-MEDAC PHARMA, INC.-1054317

PATIENT
  Age: 49 Year
  Sex: Male
  Weight: 57 kg

DRUGS (5)
  1. METHOTREXATE SODIUM. [Suspect]
     Active Substance: METHOTREXATE SODIUM
     Indication: RHEUMATOID ARTHRITIS
     Route: 048
     Dates: start: 201009, end: 201603
  2. ARCOXIA [Concomitant]
     Active Substance: ETORICOXIB
  3. FERROUS FUMARATE [Concomitant]
     Active Substance: FERROUS FUMARATE
     Route: 048
     Dates: start: 201303
  4. FOLIC ACID. [Concomitant]
     Active Substance: FOLIC ACID
     Route: 048
     Dates: start: 201006
  5. ENBREL [Suspect]
     Active Substance: ETANERCEPT
     Route: 051
     Dates: start: 201402, end: 201603

REACTIONS (9)
  - Rash macular [Not Recovered/Not Resolved]
  - Lichenoid keratosis [Recovering/Resolving]
  - Overdose [Unknown]
  - Skin irritation [Not Recovered/Not Resolved]
  - Rash pruritic [Recovering/Resolving]
  - Post inflammatory pigmentation change [Recovering/Resolving]
  - Skin reaction [Not Recovered/Not Resolved]
  - Scar [Unknown]
  - Rash generalised [Not Recovered/Not Resolved]

NARRATIVE: CASE EVENT DATE: 201509
